FAERS Safety Report 9618695 (Version 1)
Quarter: 2013Q4

REPORT INFORMATION
  Report Type: Spontaneous
  Country: GR (occurrence: GR)
  Receive Date: 20131014
  Receipt Date: 20131014
  Transmission Date: 20140711
  Serious: Yes (Other)
  Sender: FDA-Public Use
  Company Number: GR-ELI_LILLY_AND_COMPANY-GR201310001142

PATIENT
  Age: 60 Year
  Sex: Male

DRUGS (2)
  1. CYMBALTA [Suspect]
     Indication: PAIN
     Dosage: 60 MG, QD
     Route: 048
     Dates: start: 20130925, end: 20130926
  2. LONALGAL [Concomitant]
     Indication: PAIN
     Dosage: UNK UNK, QID
     Route: 048

REACTIONS (5)
  - Hypotension [Unknown]
  - Syncope [Unknown]
  - Hot flush [Unknown]
  - Hyperhidrosis [Unknown]
  - Dizziness [Unknown]
